FAERS Safety Report 25069310 (Version 1)
Quarter: 2025Q1

REPORT INFORMATION
  Report Type: Spontaneous
  Country: US (occurrence: US)
  Receive Date: 20250312
  Receipt Date: 20250312
  Transmission Date: 20250409
  Serious: No
  Sender: Krystal Biotech
  Company Number: US-KRYSTAL BIOTECH, INC.-2024KRYUS00185

PATIENT
  Sex: Male

DRUGS (1)
  1. VYJUVEK [Suspect]
     Active Substance: BEREMAGENE GEPERPAVEC-SVDT
     Indication: Epidermolysis bullosa
     Route: 061
     Dates: start: 202408

REACTIONS (2)
  - Wound haemorrhage [Unknown]
  - Pyrexia [Unknown]
